FAERS Safety Report 18848540 (Version 1)
Quarter: 2021Q1

REPORT INFORMATION
  Report Type: Spontaneous
  Country: US (occurrence: US)
  Receive Date: 20210205
  Receipt Date: 20210205
  Transmission Date: 20210419
  Serious: No
  Sender: FDA-Public Use
  Company Number: US-SA-2021SA033829

PATIENT
  Age: 56 Year
  Sex: Male

DRUGS (2)
  1. DUPIXENT [Suspect]
     Active Substance: DUPILUMAB
     Dosage: 300 MG, QOW
     Route: 058
     Dates: start: 202010
  2. PREDNISONE. [Concomitant]
     Active Substance: PREDNISONE
     Indication: ECZEMA
     Dosage: 60 MG
     Dates: start: 2019

REACTIONS (5)
  - Hypoaesthesia [Unknown]
  - Condition aggravated [Recovering/Resolving]
  - Oral pain [Unknown]
  - Arthralgia [Recovering/Resolving]
  - Gingival pain [Unknown]
